FAERS Safety Report 9841068 (Version 1)
Quarter: 2014Q1

REPORT INFORMATION
  Report Type: Spontaneous
  Country: US (occurrence: US)
  Receive Date: 20140124
  Receipt Date: 20140124
  Transmission Date: 20141002
  Serious: No
  Sender: FDA-Public Use
  Company Number: US-009507513-1401USA011065

PATIENT
  Age: 63 Year
  Sex: Female

DRUGS (5)
  1. LISINOPRIL [Suspect]
     Route: 048
  2. DIAZEPAM [Suspect]
  3. HYDROCHLOROTHIAZIDE [Concomitant]
  4. MORPHINE [Concomitant]
  5. PREDNISONE [Concomitant]

REACTIONS (2)
  - Hyperkalaemia [Unknown]
  - Hypotension [Unknown]
